FAERS Safety Report 9860751 (Version 2)
Quarter: 2014Q1

REPORT INFORMATION
  Report Type: Spontaneous
  Country: IT (occurrence: IT)
  Receive Date: 20140202
  Receipt Date: 20140202
  Transmission Date: 20141002
  Serious: No
  Sender: FDA-Public Use
  Company Number: IT-ALLERGAN-1300879US

PATIENT
  Age: 50 Year
  Sex: Female

DRUGS (1)
  1. VISTABEX [Suspect]
     Indication: SKIN WRINKLING
     Dosage: UNK, SINGLE
     Dates: start: 20130111, end: 20130111

REACTIONS (5)
  - Hypertension [Unknown]
  - Wrong technique in drug usage process [Unknown]
  - Drug ineffective [Unknown]
  - Off label use [Unknown]
  - Hypertension [Unknown]
